FAERS Safety Report 25368262 (Version 1)
Quarter: 2025Q2

REPORT INFORMATION
  Report Type: Spontaneous
  Country: US (occurrence: US)
  Receive Date: 20250528
  Receipt Date: 20250528
  Transmission Date: 20250717
  Serious: Yes (Other)
  Sender: SANDOZ
  Company Number: US-SANDOZ-SDZ2025US036248

PATIENT
  Age: 66 Year
  Sex: Male

DRUGS (8)
  1. CARBOPLATIN [Suspect]
     Active Substance: CARBOPLATIN
     Indication: Hormone-refractory prostate cancer
     Route: 065
  2. CARBOPLATIN [Suspect]
     Active Substance: CARBOPLATIN
     Indication: Metastasis
  3. CABAZITAXEL [Suspect]
     Active Substance: CABAZITAXEL
     Indication: Hormone-refractory prostate cancer
     Route: 065
  4. CABAZITAXEL [Suspect]
     Active Substance: CABAZITAXEL
     Indication: Metastasis
  5. DOCETAXEL [Suspect]
     Active Substance: DOCETAXEL
     Indication: Hormone-refractory prostate cancer
     Route: 065
     Dates: start: 202303, end: 202306
  6. DOCETAXEL [Suspect]
     Active Substance: DOCETAXEL
     Indication: Metastasis
  7. ENZALUTAMIDE [Suspect]
     Active Substance: ENZALUTAMIDE
     Indication: Hormone-refractory prostate cancer
     Route: 065
  8. ENZALUTAMIDE [Suspect]
     Active Substance: ENZALUTAMIDE
     Indication: Metastasis

REACTIONS (3)
  - Hormone-refractory prostate cancer [Unknown]
  - Disease progression [Unknown]
  - Therapy partial responder [Unknown]

NARRATIVE: CASE EVENT DATE: 20230101
